FAERS Safety Report 9938005 (Version 1)
Quarter: 2014Q1

REPORT INFORMATION
  Report Type: Spontaneous
  Country: US (occurrence: US)
  Receive Date: 20140303
  Receipt Date: 20140303
  Transmission Date: 20141002
  Serious: Yes (Hospitalization)
  Sender: FDA-Public Use
  Company Number: US-DRREDDYS-USA/USA/14/0038529

PATIENT
  Age: 15 Year
  Sex: Male

DRUGS (1)
  1. MINOCYCLINE HYDROCHLORIDE [Suspect]
     Indication: ACNE
     Route: 065

REACTIONS (1)
  - Serum sickness-like reaction [Recovered/Resolved]
